FAERS Safety Report 13078814 (Version 2)
Quarter: 2017Q2

REPORT INFORMATION
  Report Type: Spontaneous
  Country: CH (occurrence: CH)
  Receive Date: 20170102
  Receipt Date: 20170411
  Transmission Date: 20170830
  Serious: Yes (Hospitalization)
  Sender: FDA-Public Use
  Company Number: PHHY2016CH176970

PATIENT
  Age: 66 Year
  Sex: Male

DRUGS (5)
  1. ESOMEPRAZOLE [Concomitant]
     Active Substance: ESOMEPRAZOLE
     Route: 048
  2. ZOLPIDEM [Suspect]
     Active Substance: ZOLPIDEM\ZOLPIDEM TARTRATE
     Indication: SEDATIVE THERAPY
     Dosage: 10 MG, QD
     Route: 048
     Dates: start: 201610, end: 20161101
  3. ESOMEPRAZOLE [Concomitant]
     Active Substance: ESOMEPRAZOLE
     Indication: PRODUCT USED FOR UNKNOWN INDICATION
     Dosage: UNK
     Route: 048
  4. PIROXICAM. [Concomitant]
     Active Substance: PIROXICAM
     Indication: ARTHROPATHY
     Dosage: UNK
     Route: 048
     Dates: end: 20161101
  5. SIRDALUD [Suspect]
     Active Substance: TIZANIDINE
     Indication: MYALGIA
     Dosage: 4 MG, QD
     Route: 048
     Dates: start: 20161023, end: 20161101

REACTIONS (2)
  - Generalised tonic-clonic seizure [Recovered/Resolved]
  - Confusional state [Recovered/Resolved]

NARRATIVE: CASE EVENT DATE: 20161028
